FAERS Safety Report 9404313 (Version 1)
Quarter: 2013Q3

REPORT INFORMATION
  Report Type: Spontaneous
  Country: DE (occurrence: DE)
  Receive Date: 20130717
  Receipt Date: 20130717
  Transmission Date: 20140515
  Serious: Yes (Hospitalization, Other)
  Sender: FDA-Public Use
  Company Number: DE-MPIJNJ-2013-04736

PATIENT
  Sex: 0

DRUGS (4)
  1. VELCADE [Suspect]
     Indication: PLASMA CELL MYELOMA
     Dosage: 1.3 MG/M2, UNK
     Route: 042
     Dates: start: 20130213, end: 20130522
  2. PREDNISONE [Concomitant]
     Dosage: UNK
     Dates: start: 201302, end: 201305
  3. DEXAMETHASONE [Concomitant]
     Dosage: 20 MG, UNK
     Route: 048
  4. PAMIDRONIC ACID [Concomitant]
     Dosage: 90 MG, UNK

REACTIONS (6)
  - Transaminases increased [Not Recovered/Not Resolved]
  - Platelet count decreased [Recovered/Resolved]
  - Blood bilirubin increased [Unknown]
  - Cholecystitis [Unknown]
  - Hepatitis [Unknown]
  - Thrombocytopenia [Unknown]
